FAERS Safety Report 8353121-5 (Version None)
Quarter: 2012Q2

REPORT INFORMATION
  Report Type: 
  Country: None (occurrence: None)
  Receive Date: 20120511
  Receipt Date: 20120502
  Transmission Date: 20120825
  Serious: Yes (Disabling, Other)
  Sender: FDA-Public Use
  Company Number: US-PERRIGO-12US001193

PATIENT
  Sex: Male
  Weight: 90.249 kg

DRUGS (5)
  1. OXYCODONE HCL [Concomitant]
     Indication: PAIN
     Dosage: UNK
     Route: 065
     Dates: start: 20100101
  2. PEGINTERFERON ALFA-2A [Concomitant]
     Indication: PRODUCT USED FOR UNKNOWN INDICATION
     Dosage: UNK
  3. LORAZEPAM [Concomitant]
     Indication: ANXIETY
     Dosage: UNK
     Route: 065
  4. HEMORRHOIDAL CRM 944 [Suspect]
     Indication: HAEMORRHOIDS
     Dosage: SINGLE
     Route: 054
     Dates: start: 20120209, end: 20120209
  5. HEMORRHOIDAL CRM 944 [Suspect]
     Dosage: PRN
     Route: 054
     Dates: start: 20100101

REACTIONS (29)
  - GASTROINTESTINAL INJURY [None]
  - FOREIGN BODY [None]
  - GENITAL INJURY [None]
  - PAINFUL ERECTION [None]
  - PROCTALGIA [None]
  - PARANOID PERSONALITY DISORDER [None]
  - RECTAL FISSURE [None]
  - DEAFNESS [None]
  - PENILE PAIN [None]
  - DYSURIA [None]
  - ERECTILE DYSFUNCTION [None]
  - DEPRESSION [None]
  - EMOTIONAL DISTRESS [None]
  - MORBID THOUGHTS [None]
  - BIPOLAR DISORDER [None]
  - PAINFUL DEFAECATION [None]
  - ANXIETY [None]
  - STRESS [None]
  - NERVE INJURY [None]
  - SCHIZOPHRENIA, PARANOID TYPE [None]
  - RECTAL ULCER [None]
  - BLINDNESS [None]
  - SUICIDAL IDEATION [None]
  - ANAL PRURITUS [None]
  - ANORECTAL INFECTION [None]
  - RECTAL HAEMORRHAGE [None]
  - BURNING SENSATION [None]
  - SCHIZOPHRENIA [None]
  - TINNITUS [None]
